FAERS Safety Report 6927476-X (Version None)
Quarter: 2010Q3

REPORT INFORMATION
  Report Type: 
  Country: None (occurrence: None)
  Receive Date: 20100817
  Receipt Date: 20100809
  Transmission Date: 20110219
  Serious: Yes (Hospitalization)
  Sender: FDA-Public Use
  Company Number: IE-JNJFOC-20100802406

PATIENT
  Sex: Female

DRUGS (3)
  1. CONCERTA [Suspect]
     Indication: PRODUCT USED FOR UNKNOWN INDICATION
     Route: 048
  2. FEXOFENADINE [Interacting]
     Indication: SINUSITIS
     Route: 065
  3. FEXOFENADINE [Interacting]
     Indication: LARYNGITIS
     Route: 065

REACTIONS (3)
  - DRUG INTERACTION [None]
  - MOVEMENT DISORDER [None]
  - SYNCOPE [None]
